FAERS Safety Report 24377987 (Version 1)
Quarter: 2024Q3

REPORT INFORMATION
  Report Type: Report from Study
  Country: US (occurrence: US)
  Receive Date: 20240930
  Receipt Date: 20240930
  Transmission Date: 20241017
  Serious: Yes (Other)
  Sender: BAYER
  Company Number: US-BAYER-2024A133653

PATIENT
  Age: 77 Year
  Sex: Female
  Weight: 58.957 kg

DRUGS (16)
  1. ADEMPAS [Suspect]
     Active Substance: RIOCIGUAT
     Indication: Pulmonary arterial hypertension
     Dosage: UNK
     Dates: start: 20220907
  2. ADEMPAS [Suspect]
     Active Substance: RIOCIGUAT
     Indication: Pulmonary arterial hypertension
     Dosage: 2.5 MG, TID
     Route: 048
  3. SYSTANE (HYPROMELLOSE 2910 (4000 MPA.S)) [Concomitant]
     Active Substance: HYPROMELLOSE 2910 (4000 MPA.S)
  4. OMEPRAZOLE [Concomitant]
     Active Substance: OMEPRAZOLE
  5. SINGULAIR [Concomitant]
     Active Substance: MONTELUKAST SODIUM
  6. ELIQUIS [Concomitant]
     Active Substance: APIXABAN
  7. LETAIRIS [Concomitant]
     Active Substance: AMBRISENTAN
  8. MAGNESIUM [Concomitant]
     Active Substance: MAGNESIUM
  9. LEVOTHYROXINE [Concomitant]
     Active Substance: LEVOTHYROXINE\LEVOTHYROXINE SODIUM
  10. GABAPENTIN [Concomitant]
     Active Substance: GABAPENTIN
  11. METOPROLOL SUCCINATE [Concomitant]
     Active Substance: METOPROLOL SUCCINATE
  12. POTASSIUM CHLORIDE [Concomitant]
     Active Substance: POTASSIUM CHLORIDE
  13. OXYGEN [Concomitant]
     Active Substance: OXYGEN
  14. BUMETANIDE [Concomitant]
     Active Substance: BUMETANIDE
  15. SPIRONOLACTONE [Concomitant]
     Active Substance: SPIRONOLACTONE
  16. LOSARTAN POTASSIUM [Concomitant]
     Active Substance: LOSARTAN POTASSIUM

REACTIONS (3)
  - Illness [Recovered/Resolved]
  - Eating disorder [None]
  - Product dose omission issue [None]
